FAERS Safety Report 19029822 (Version 1)
Quarter: 2021Q1

REPORT INFORMATION
  Report Type: Spontaneous
  Country: US (occurrence: US)
  Receive Date: 20210317
  Receipt Date: 20210317
  Transmission Date: 20210420
  Serious: Yes (Hospitalization)
  Sender: FDA-Public Use
  Company Number: None

PATIENT
  Sex: Male

DRUGS (7)
  1. CAPECITABINE 500MG TAB [Suspect]
     Active Substance: CAPECITABINE
     Indication: COLON CANCER
     Dosage: ?          OTHER ROUTE:D1?14 OF 21 CYCLE?
     Dates: start: 20210203
  2. CENTRUM MEN [Concomitant]
     Active Substance: MINERALS\VITAMINS
  3. AMLODIPINE [Concomitant]
     Active Substance: AMLODIPINE BESYLATE
  4. DIPHEN/ATROP [Concomitant]
     Active Substance: ATROPINE SULFATE\DIPHENOXYLATE
  5. CAPECITABINE 150MG TAB [Suspect]
     Active Substance: CAPECITABINE
     Indication: COLON CANCER
     Dosage: ?          OTHER ROUTE:D 1?14 OF 21 CYCLE?
     Dates: start: 20210203
  6. LOSARTAN POT [Concomitant]
     Active Substance: LOSARTAN POTASSIUM
  7. ONDANSETRON [Concomitant]
     Active Substance: ONDANSETRON

REACTIONS (6)
  - Diarrhoea [None]
  - Paraesthesia oral [None]
  - Pyrexia [None]
  - Abdominal pain upper [None]
  - Blue toe syndrome [None]
  - Dehydration [None]
